FAERS Safety Report 10363776 (Version 1)
Quarter: 2014Q3

REPORT INFORMATION
  Report Type: Spontaneous
  Country: US (occurrence: None)
  Receive Date: 20140801
  Receipt Date: 20140801
  Transmission Date: 20150326
  Serious: Yes (Hospitalization)
  Sender: FDA-Public Use
  Company Number: 2014SMT00020

PATIENT
  Age: 52 Year
  Sex: Male

DRUGS (1)
  1. REGRANEX [Suspect]
     Active Substance: BECAPLERMIN
     Indication: DIABETIC FOOT
     Route: 061
     Dates: start: 201405, end: 201405

REACTIONS (3)
  - Incorrect drug administration duration [None]
  - Amputation [None]
  - Localised infection [None]

NARRATIVE: CASE EVENT DATE: 201405
